FAERS Safety Report 7070552-4 (Version None)
Quarter: 2010Q4

REPORT INFORMATION
  Report Type: 
  Country: None (occurrence: None)
  Receive Date: 20101029
  Receipt Date: 20101018
  Transmission Date: 20110411
  Serious: Yes (Life-Threatening, Hospitalization)
  Sender: FDA-Public Use
  Company Number: US-PFIZER INC-2009182587

PATIENT
  Age: 68 Year
  Sex: Female
  Weight: 129 kg

DRUGS (7)
  1. EXEMESTANE [Suspect]
     Indication: BREAST CANCER
     Dosage: 25 MG, 1X/DAY
     Route: 048
     Dates: start: 20060914
  2. DETROL LA [Suspect]
     Dosage: 4 MG, 1X/DAY
  3. CALCIUM CARBONATE [Suspect]
     Dosage: 1250 MG, 2X/DAY
     Route: 048
  4. LOVASTATIN [Suspect]
     Dosage: 20 MG, 1X/DAY
  5. ZETIA [Suspect]
     Dosage: 10 MG, 1X/DAY
  6. ASPIRIN [Concomitant]
     Dosage: 81 MG, 1X/DAY
     Route: 048
  7. VITAMIN D [Concomitant]
     Dosage: 400 IU, 2X/DAY

REACTIONS (2)
  - DEEP VEIN THROMBOSIS [None]
  - PULMONARY EMBOLISM [None]
